FAERS Safety Report 5615920-X (Version None)
Quarter: 2008Q1

REPORT INFORMATION
  Report Type: 
  Country: None (occurrence: None)
  Receive Date: 20080206
  Receipt Date: 20080201
  Transmission Date: 20080703
  Serious: Yes (Disabling)
  Sender: FDA-Public Use
  Company Number: JP-SANOFI-SYNTHELABO-A01200800955

PATIENT
  Age: 77 Year
  Sex: Male

DRUGS (3)
  1. FLUOROURACIL [Concomitant]
     Dosage: 500 MG/BODY BOLUS THEN 3000 MG/BODY CONTINUOUS INFUSION
     Route: 042
     Dates: start: 20080117, end: 20080117
  2. ELPLAT [Suspect]
     Indication: DRUG USE FOR UNKNOWN INDICATION
     Dosage: 100 MG/BODY
     Route: 042
     Dates: start: 20080117, end: 20080117
  3. LEUCOVORIN CALCIUM [Concomitant]
     Dosage: 250 MG/BODY
     Route: 042
     Dates: start: 20080117, end: 20080117

REACTIONS (1)
  - MONOPLEGIA [None]
